FAERS Safety Report 26123545 (Version 2)
Quarter: 2025Q4

REPORT INFORMATION
  Report Type: Spontaneous
  Country: EU (occurrence: EU)
  Receive Date: 20251204
  Receipt Date: 20251210
  Transmission Date: 20260118
  Serious: Yes (Hospitalization, Other)
  Sender: HETERO
  Company Number: EU-AMAROX PHARMA-AMR2025ES06847

PATIENT
  Age: 34 Year
  Sex: Male

DRUGS (5)
  1. SILDENAFIL [Suspect]
     Active Substance: SILDENAFIL
     Indication: Performance enhancing product use
     Dosage: UNK
     Route: 065
  2. TESTOSTERONE [Suspect]
     Active Substance: TESTOSTERONE
     Indication: Performance enhancing product use
     Dosage: UNK
     Route: 065
  3. NANDROLONE [Suspect]
     Active Substance: NANDROLONE
     Indication: Performance enhancing product use
     Dosage: UNK
     Route: 065
  4. TRENBOLONE [Suspect]
     Active Substance: TRENBOLONE
     Indication: Product used for unknown indication
     Dosage: UNK
     Route: 065
  5. OXYBATE [Suspect]
     Active Substance: OXYBATE
     Indication: Product used for unknown indication
     Dosage: UNK
     Route: 065

REACTIONS (10)
  - Mood swings [Unknown]
  - Psychiatric symptom [Unknown]
  - Feeling of despair [Unknown]
  - Suicidal ideation [Unknown]
  - Hyperhidrosis [Unknown]
  - Restlessness [Unknown]
  - Anger [Unknown]
  - Paranoia [Unknown]
  - Drug abuse [Unknown]
  - Tachycardia [Unknown]
